FAERS Safety Report 12523586 (Version 1)
Quarter: 2016Q3

REPORT INFORMATION
  Report Type: Spontaneous
  Country: US (occurrence: US)
  Receive Date: 20160703
  Receipt Date: 20160703
  Transmission Date: 20161109
  Serious: No
  Sender: FDA-Public Use
  Company Number: US-009507513-1606USA008835

PATIENT
  Sex: Female

DRUGS (22)
  1. CALTRATE [Concomitant]
     Active Substance: CALCIUM CARBONATE
  2. HYDROCODONE [Concomitant]
     Active Substance: HYDROCODONE
  3. VALACYCLOVIR HYDROCHLORIDE. [Concomitant]
     Active Substance: VALACYCLOVIR HYDROCHLORIDE
  4. LOMOTIL [Concomitant]
     Active Substance: ATROPINE SULFATE\DIPHENOXYLATE HYDROCHLORIDE
  5. TAPAZOLE [Concomitant]
     Active Substance: METHIMAZOLE
  6. XANAX [Concomitant]
     Active Substance: ALPRAZOLAM
  7. XARELTO [Concomitant]
     Active Substance: RIVAROXABAN
  8. FLONASE [Concomitant]
     Active Substance: FLUTICASONE PROPIONATE
  9. PREDNISONE. [Concomitant]
     Active Substance: PREDNISONE
  10. ASPIRIN. [Concomitant]
     Active Substance: ASPIRIN
  11. VITAMIN D [Concomitant]
     Active Substance: CHOLECALCIFEROL
  12. AMINOCAPROIC ACID. [Concomitant]
     Active Substance: AMINOCAPROIC ACID
  13. CELEBREX [Concomitant]
     Active Substance: CELECOXIB
  14. CYMBALTA [Concomitant]
     Active Substance: DULOXETINE HYDROCHLORIDE
  15. GLUCOSAMINE [Concomitant]
     Active Substance: GLUCOSAMINE
  16. KLOR-CON [Concomitant]
     Active Substance: POTASSIUM CHLORIDE
  17. LIPITOR [Concomitant]
     Active Substance: ATORVASTATIN CALCIUM
  18. OMEPRAZOLE. [Concomitant]
     Active Substance: OMEPRAZOLE
  19. TESSALON [Concomitant]
     Active Substance: BENZONATATE
  20. SINGULAIR [Suspect]
     Active Substance: MONTELUKAST SODIUM
     Dosage: 10 MG, QD
     Route: 048
  21. FENTANYL. [Concomitant]
     Active Substance: FENTANYL
  22. ZOFRAN [Concomitant]
     Active Substance: ONDANSETRON HYDROCHLORIDE

REACTIONS (1)
  - Fatigue [Unknown]
